FAERS Safety Report 10243500 (Version 1)
Quarter: 2014Q2

REPORT INFORMATION
  Report Type: Spontaneous
  Country: US (occurrence: None)
  Receive Date: 20140616
  Receipt Date: 20140616
  Transmission Date: 20141212
  Serious: No
  Sender: FDA-Public Use
  Company Number: None

PATIENT
  Age: 20 Year
  Sex: Female
  Weight: 97.52 kg

DRUGS (1)
  1. BEYAZ BAYER [Suspect]
     Indication: CONTRACEPTION
     Dosage: ONE PILL ONCE DAILY TAKEN BY MOUTH
     Route: 048
     Dates: start: 20140413, end: 20140601

REACTIONS (8)
  - Migraine [None]
  - Feeling abnormal [None]
  - Dizziness [None]
  - Abdominal pain upper [None]
  - Libido decreased [None]
  - Eye pain [None]
  - Feeling abnormal [None]
  - Headache [None]
